FAERS Safety Report 23197881 (Version 1)
Quarter: 2023Q4

REPORT INFORMATION
  Report Type: Spontaneous
  Country: US (occurrence: None)
  Receive Date: 20231117
  Receipt Date: 20231117
  Transmission Date: 20240110
  Serious: Yes (Hospitalization)
  Sender: FDA-Public Use
  Company Number: None

PATIENT
  Age: 54 Year
  Sex: Female
  Weight: 60.3 kg

DRUGS (6)
  1. YESCARTA [Suspect]
     Active Substance: AXICABTAGENE CILOLEUCEL
     Indication: Diffuse large B-cell lymphoma
     Dosage: OTHER FREQUENCY : ONCE;?
     Route: 041
     Dates: start: 20230213, end: 20230213
  2. ALLOPURINOL [Concomitant]
     Active Substance: ALLOPURINOL
  3. FLUCONAZOLE [Concomitant]
     Active Substance: FLUCONAZOLE
  4. LEVETIRACETAM [Concomitant]
     Active Substance: LEVETIRACETAM
  5. OXYBUTYNIN [Concomitant]
     Active Substance: OXYBUTYNIN
  6. VALACYCLOVIR [Concomitant]
     Active Substance: VALACYCLOVIR HYDROCHLORIDE

REACTIONS (3)
  - Febrile neutropenia [None]
  - Cytokine release syndrome [None]
  - Tachycardia [None]

NARRATIVE: CASE EVENT DATE: 20230217
